FAERS Safety Report 20210346 (Version 1)
Quarter: 2021Q4

REPORT INFORMATION
  Report Type: Other
  Country: PT (occurrence: PT)
  Receive Date: 20211221
  Receipt Date: 20211221
  Transmission Date: 20220303
  Serious: Yes (Hospitalization, Other)
  Sender: FDA-Public Use
  Company Number: PT-MEDINFARP-2021-12-2943

PATIENT

DRUGS (1)
  1. DEXAMETHASONE [Suspect]
     Active Substance: DEXAMETHASONE
     Indication: COVID-19 treatment
     Route: 065

REACTIONS (3)
  - COVID-19 [Unknown]
  - Secondary immunodeficiency [Recovered/Resolved]
  - Infection in an immunocompromised host [Recovered/Resolved]
